FAERS Safety Report 10021500 (Version 1)
Quarter: 2014Q1

REPORT INFORMATION
  Report Type: Spontaneous
  Country: US (occurrence: None)
  Receive Date: 20140318
  Receipt Date: 20140318
  Transmission Date: 20141002
  Serious: No
  Sender: FDA-Public Use
  Company Number: None

PATIENT
  Age: 27 Year
  Sex: Female
  Weight: 135 kg

DRUGS (6)
  1. DULOXETINE [Suspect]
     Indication: PAIN
     Dosage: 1 CAP
     Route: 048
     Dates: start: 20140125, end: 20140224
  2. URSODIOL [Concomitant]
  3. DOCUSATE [Concomitant]
  4. OMEPRAZOLE [Concomitant]
  5. BUPROPION [Concomitant]
  6. HYDROCODONE/ACETAMINOPHEN [Concomitant]

REACTIONS (3)
  - Anxiety [None]
  - Product substitution issue [None]
  - Product quality issue [None]
